FAERS Safety Report 25095036 (Version 1)
Quarter: 2025Q1

REPORT INFORMATION
  Report Type: Spontaneous
  Country: JP (occurrence: JP)
  Receive Date: 20250319
  Receipt Date: 20250319
  Transmission Date: 20250409
  Serious: Yes (Other)
  Sender: ASTELLAS
  Company Number: JP-ASTELLAS-2025-AER-015790

PATIENT
  Age: 75 Year
  Sex: Female

DRUGS (1)
  1. CRESEMBA [Suspect]
     Active Substance: ISAVUCONAZONIUM SULFATE
     Indication: Product used for unknown indication
     Route: 050

REACTIONS (5)
  - Hyperkalaemia [Unknown]
  - Hot flush [Unknown]
  - Eosinophil count increased [Unknown]
  - Pruritus [Unknown]
  - Taste disorder [Unknown]
